FAERS Safety Report 9219533 (Version 1)
Quarter: 2013Q1

REPORT INFORMATION
  Report Type: Spontaneous
  Country: US (occurrence: None)
  Receive Date: 20120828
  Receipt Date: 20120828
  Transmission Date: 20140127
  Serious: Yes (Hospitalization, Other)
  Sender: FDA-Public Use
  Company Number: 2011BH023063

PATIENT
  Sex: Male

DRUGS (7)
  1. KIOVIG_LIQUID_10%_SOLUTION FOR INFUSION_VIAL, GLASS (IMMUNOGLOBULIN, NORMAL HUMAN) (SOLUTION FOR INFUSION) [Suspect]
     Indication: DEMYELINATING POLYNEUROPATHY
  2. KIOVIG_LIQUID_10%_SOLUTION FOR INFUSION_VIAL, GLASS (IMMUNOGLOBULIN, NORMAL HUMAN) (SOLUTION FOR INFUSION) [Suspect]
     Indication: OFF LABEL USE
  3. BENADRYL (UNKNOWN) [Concomitant]
  4. TYLENOL (UNKNOWN) [Concomitant]
  5. OMEPRAZOLE (OMEPRAZOLE) (UNKNOWN) [Concomitant]
  6. LEVOTHYROXINE (LEVOTHYROXINE) (UNKNOWN) [Concomitant]
  7. HYDROCHLOROTHIAZIDE (HYDROCHLOROTHIAZIDE) (UNKNOWN) [Concomitant]

REACTIONS (3)
  - Myocardial infarction [None]
  - Malaise [None]
  - Malaise [None]
